FAERS Safety Report 8679746 (Version 2)
Quarter: 2013Q1

REPORT INFORMATION
  Report Type: Spontaneous
  Country: CA (occurrence: CA)
  Receive Date: 20120724
  Receipt Date: 20130211
  Transmission Date: 20140127
  Serious: Yes (Death, Other)
  Sender: FDA-Public Use
  Company Number: PHHY2012CA002873

PATIENT
  Age: 81 Year
  Sex: Male
  Weight: 63.49 kg

DRUGS (1)
  1. SANDOSTATIN LAR [Suspect]
     Indication: METASTATIC CARCINOID TUMOUR
     Dosage: 30 MG, EVERY 4 WEEKS
     Route: 030
     Dates: start: 20070706, end: 20130110

REACTIONS (5)
  - Death [Fatal]
  - Weight decreased [Unknown]
  - Cholelithiasis [Unknown]
  - Diarrhoea [Unknown]
  - Malaise [Unknown]
